FAERS Safety Report 5188238-X (Version None)
Quarter: 2006Q4

REPORT INFORMATION
  Report Type: 
  Country: None (occurrence: None)
  Receive Date: 20061221
  Receipt Date: 20060801
  Transmission Date: 20070319
  Serious: Yes (Other)
  Sender: FDA-Public Use
  Company Number: CA-GLAXOSMITHKLINE-A0615168A

PATIENT
  Sex: Male

DRUGS (1)
  1. PAXIL [Suspect]
     Indication: MAJOR DEPRESSION
     Route: 048

REACTIONS (8)
  - ABNORMAL BEHAVIOUR [None]
  - CONCUSSION [None]
  - DRUG WITHDRAWAL SYNDROME [None]
  - FALL [None]
  - LEGAL PROBLEM [None]
  - MEMORY IMPAIRMENT [None]
  - PHYSICAL ASSAULT [None]
  - SUICIDAL IDEATION [None]
